FAERS Safety Report 24903645 (Version 1)
Quarter: 2025Q1

REPORT INFORMATION
  Report Type: Spontaneous
  Country: US (occurrence: US)
  Receive Date: 20250130
  Receipt Date: 20250130
  Transmission Date: 20250408
  Serious: No
  Sender: RHYTHM PHARMACEUTICALS, INC.
  Company Number: US-Rhythm Pharmaceuticals, Inc.-2024RHM000440

PATIENT
  Age: 31 Year
  Sex: Male

DRUGS (5)
  1. IMCIVREE [Suspect]
     Active Substance: SETMELANOTIDE
     Indication: Laurence-Moon-Bardet-Biedl syndrome
     Dosage: INJECT 2 MG (0.2 ML) SUBCUTANEOUSLY ONCE DAILY FOR 2 WEEKS, THEN INJECT 3 MG (0.3 ML) ONCE DAILY THE
     Route: 058
  2. IMCIVREE [Suspect]
     Active Substance: SETMELANOTIDE
     Dosage: INJECT 2 MG (0.2 ML) SUBCUTANEOUSLY ONCE DAILY FOR 2 WEEKS, THEN INJECT 3 MG (0.3 ML) ONCE DAILY THE
     Route: 058
  3. METFORMIN [Concomitant]
     Active Substance: METFORMIN HYDROCHLORIDE
     Indication: Product used for unknown indication
     Route: 065
  4. PHENTERMINE [Concomitant]
     Active Substance: PHENTERMINE
     Indication: Product used for unknown indication
     Route: 065
  5. TACROLIMUS [Concomitant]
     Active Substance: TACROLIMUS
     Indication: Product used for unknown indication
     Route: 065

REACTIONS (7)
  - Eczema [Not Recovered/Not Resolved]
  - Dyspepsia [Not Recovered/Not Resolved]
  - Product dose omission in error [Recovered/Resolved]
  - Nausea [Not Recovered/Not Resolved]
  - Dizziness [Recovered/Resolved]
  - Skin hyperpigmentation [Not Recovered/Not Resolved]
  - Spontaneous penile erection [Unknown]

NARRATIVE: CASE EVENT DATE: 20240801
